FAERS Safety Report 6260647-7 (Version None)
Quarter: 2009Q3

REPORT INFORMATION
  Report Type: 
  Country: None (occurrence: None)
  Receive Date: 20090708
  Receipt Date: 20090608
  Transmission Date: 20100115
  Serious: No
  Sender: FDA-Public Use
  Company Number: US-BAYER-200911772BCC

PATIENT
  Age: 86 Year
  Sex: Female
  Weight: 77 kg

DRUGS (3)
  1. ALEVE (CAPLET) [Suspect]
     Indication: ARTHRALGIA
     Dosage: UNIT DOSE: 220 MG
     Route: 048
     Dates: start: 20090601
  2. SYNTHROID [Concomitant]
     Indication: DRUG USE FOR UNKNOWN INDICATION
     Route: 065
  3. HYDROCLORIZIDE [Concomitant]
     Indication: DRUG USE FOR UNKNOWN INDICATION
     Route: 048

REACTIONS (2)
  - ABDOMINAL DISTENSION [None]
  - CONSTIPATION [None]
